FAERS Safety Report 7571018-5 (Version None)
Quarter: 2011Q2

REPORT INFORMATION
  Report Type: 
  Country: None (occurrence: None)
  Receive Date: 20110624
  Receipt Date: 20110610
  Transmission Date: 20111010
  Serious: Yes (Hospitalization)
  Sender: FDA-Public Use
  Company Number: HR-WATSON-2011-09177

PATIENT
  Age: 17 Year
  Sex: Female

DRUGS (2)
  1. RISPERIDONE [Suspect]
     Indication: MEDICATION ERROR
     Dosage: 6 MG, DAILY
     Route: 048
  2. CLOZAPINE [Suspect]
     Indication: MEDICATION ERROR
     Dosage: 150-200 MG DAILY
     Route: 048

REACTIONS (3)
  - OBSESSIVE-COMPULSIVE DISORDER [None]
  - MEDICATION ERROR [None]
  - CONDITION AGGRAVATED [None]
